FAERS Safety Report 19944324 (Version 2)
Quarter: 2021Q4

REPORT INFORMATION
  Report Type: Other
  Country: US (occurrence: US)
  Receive Date: 20211011
  Receipt Date: 20211209
  Transmission Date: 20220303
  Serious: No
  Sender: FDA-Public Use
  Company Number: US-NEUROCRINE BIOSCIENCES INC.-2021NBI05512

PATIENT

DRUGS (17)
  1. INGREZZA [Suspect]
     Active Substance: VALBENAZINE
     Indication: Tardive dyskinesia
     Dosage: 80 MILLIGRAM, QD
     Route: 048
     Dates: start: 20210727
  2. INGREZZA [Suspect]
     Active Substance: VALBENAZINE
     Dosage: 40 MILLIGRAM, BID
     Route: 048
     Dates: start: 20210427, end: 20210726
  3. INGREZZA [Suspect]
     Active Substance: VALBENAZINE
     Dosage: 40 MILLIGRAM, QD
     Route: 048
     Dates: start: 20190619
  4. INGREZZA [Suspect]
     Active Substance: VALBENAZINE
     Dosage: 80 MILLIGRAM, QD
     Route: 048
     Dates: start: 20190528, end: 20190618
  5. OXTELLAR XR [Suspect]
     Active Substance: OXCARBAZEPINE
     Dosage: 600 MILLIGRAM, QD, 1 HS
     Route: 048
     Dates: start: 20210827, end: 20211124
  6. DILANTIN [Suspect]
     Active Substance: PHENYTOIN
     Dosage: UNK
  7. ESZOPICLONE [Concomitant]
     Active Substance: ESZOPICLONE
     Dosage: 2 MILLIGRAM, BEFORE SLEEP
     Route: 048
     Dates: start: 20201110
  8. IBUPROFEN [Concomitant]
     Active Substance: IBUPROFEN
     Dosage: 800 MILLIGRAM, EVERY 6 HOURS
     Route: 048
  9. XANAX [Concomitant]
     Active Substance: ALPRAZOLAM
     Dosage: 1 MILLIGRAM, TID
     Route: 048
     Dates: start: 20201110, end: 20211023
  10. CHLORMEZANONE [Concomitant]
     Active Substance: CHLORMEZANONE
     Dosage: 30 MILLIGRAM, BEFORE SLEEP
     Route: 048
     Dates: start: 20201110, end: 20211023
  11. SOMA [Concomitant]
     Active Substance: CARISOPRODOL
     Dosage: 350 MILLIGRAM, QID
     Route: 048
     Dates: start: 20201110, end: 20210427
  12. CYANOCOBALAMIN [Concomitant]
     Active Substance: CYANOCOBALAMIN
     Dosage: 1 MILLILITER
     Dates: start: 20201110, end: 20210427
  13. FIORICET [Concomitant]
     Active Substance: ACETAMINOPHEN\BUTALBITAL\CAFFEINE
     Dosage: 50 MG,325 MG,40 MG- 3 DOSE PRN
     Route: 048
     Dates: start: 20201110, end: 20211023
  14. PROZAC [Concomitant]
     Active Substance: FLUOXETINE HYDROCHLORIDE
     Dosage: 40 MILLIGRAM, QD
     Route: 048
     Dates: start: 20201110
  15. TOBRADEX [Concomitant]
     Active Substance: DEXAMETHASONE\TOBRAMYCIN
     Dosage: UNK, TWICE DAILY
     Dates: start: 20210727, end: 20210805
  16. PREDNISOLONE ACETATE [Concomitant]
     Active Substance: PREDNISOLONE ACETATE
     Dosage: EVERY TWO HOURS
     Dates: start: 20210827
  17. CYCLOPENTOLATE [Concomitant]
     Active Substance: CYCLOPENTOLATE
     Dosage: UNK, BID

REACTIONS (6)
  - Intervertebral disc protrusion [Unknown]
  - Migraine with aura [Unknown]
  - Intervertebral disc displacement [Unknown]
  - Post-traumatic stress disorder [Unknown]
  - Drug interaction [Unknown]
  - Off label use [Unknown]
